FAERS Safety Report 7680607-9 (Version None)
Quarter: 2011Q3

REPORT INFORMATION
  Report Type: 
  Country: None (occurrence: None)
  Receive Date: 20110812
  Receipt Date: 20110801
  Transmission Date: 20111222
  Serious: Yes (Other)
  Sender: FDA-Public Use
  Company Number: US-ELI_LILLY_AND_COMPANY-US201108000792

PATIENT
  Age: 61 Year
  Sex: Female

DRUGS (2)
  1. CYMBALTA [Suspect]
     Indication: PAIN
     Dosage: 30 MG, QD
  2. CYMBALTA [Suspect]
     Dosage: 30 MG, QOD
     Dates: start: 20110701

REACTIONS (6)
  - CONFUSIONAL STATE [None]
  - OFF LABEL USE [None]
  - ABASIA [None]
  - BALANCE DISORDER [None]
  - AMNESIA [None]
  - DIZZINESS [None]
